FAERS Safety Report 10923762 (Version 9)
Quarter: 2016Q4

REPORT INFORMATION
  Report Type: Report from Study
  Country: CA (occurrence: CA)
  Receive Date: 20150318
  Receipt Date: 20161124
  Transmission Date: 20170206
  Serious: Yes (Other)
  Sender: FDA-Public Use
  Company Number: CA-ROCHE-1371692

PATIENT
  Age: 61 Year
  Sex: Female
  Weight: 76 kg

DRUGS (15)
  1. PANTOLOC [Concomitant]
     Active Substance: PANTOPRAZOLE SODIUM
  2. SALAGEN [Suspect]
     Active Substance: PILOCARPINE HYDROCHLORIDE
     Indication: SJOGREN^S SYNDROME
     Route: 065
  3. ATIVAN [Concomitant]
     Active Substance: LORAZEPAM
  4. RESTASIS [Concomitant]
     Active Substance: CYCLOSPORINE
  5. CRESTOR [Concomitant]
     Active Substance: ROSUVASTATIN CALCIUM
  6. ACETAMINOPHEN. [Concomitant]
     Active Substance: ACETAMINOPHEN
     Indication: PREMEDICATION
     Route: 048
     Dates: start: 20120216
  7. METHYLPREDNISOLONE. [Concomitant]
     Active Substance: METHYLPREDNISOLONE
     Indication: PREMEDICATION
     Route: 042
     Dates: start: 20120216
  8. CIPROLEX [Concomitant]
     Active Substance: CIPROFLOXACIN HYDROCHLORIDE
  9. CIPRALEX [Concomitant]
     Active Substance: ESCITALOPRAM OXALATE
  10. ZENHALE [Concomitant]
     Active Substance: FORMOTEROL FUMARATE\MOMETASONE FUROATE
  11. SALBUTAMOL [Concomitant]
     Active Substance: ALBUTEROL
  12. EZETROL [Concomitant]
     Active Substance: EZETIMIBE
  13. RITUXAN [Suspect]
     Active Substance: RITUXIMAB
     Indication: SJOGREN^S SYNDROME
     Route: 042
     Dates: start: 20120216
  14. DIPHENHYDRAMINE HCL [Concomitant]
     Active Substance: DIPHENHYDRAMINE HYDROCHLORIDE
     Indication: PREMEDICATION
     Route: 048
     Dates: start: 20120216
  15. NEXIUM [Concomitant]
     Active Substance: ESOMEPRAZOLE MAGNESIUM

REACTIONS (32)
  - Productive cough [Not Recovered/Not Resolved]
  - Sjogren^s syndrome [Not Recovered/Not Resolved]
  - Nodal osteoarthritis [Unknown]
  - Dysphagia [Not Recovered/Not Resolved]
  - Blood pressure increased [Unknown]
  - Pneumonia [Unknown]
  - Rash [Unknown]
  - Arthralgia [Recovering/Resolving]
  - Salivary hypersecretion [Recovering/Resolving]
  - Chest discomfort [Not Recovered/Not Resolved]
  - Dry mouth [Recovering/Resolving]
  - Joint swelling [Unknown]
  - Asthenia [Unknown]
  - Weight increased [Unknown]
  - Laryngeal disorder [Unknown]
  - Oxygen saturation decreased [Unknown]
  - Dizziness [Not Recovered/Not Resolved]
  - Fatigue [Recovered/Resolved]
  - Cough [Recovered/Resolved]
  - Upper respiratory tract infection [Recovering/Resolving]
  - Lacrimation increased [Recovering/Resolving]
  - Infusion related reaction [Recovered/Resolved]
  - Dry eye [Recovering/Resolving]
  - Gastrointestinal disorder [Not Recovered/Not Resolved]
  - Dyspnoea [Not Recovered/Not Resolved]
  - Complication of device insertion [Unknown]
  - Sleep apnoea syndrome [Unknown]
  - Drug hypersensitivity [Unknown]
  - Off label use [Unknown]
  - Rheumatoid arthritis [Not Recovered/Not Resolved]
  - Body temperature increased [Unknown]
  - Heart rate increased [Unknown]

NARRATIVE: CASE EVENT DATE: 2014
